FAERS Safety Report 4320311-8 (Version None)
Quarter: 2004Q1

REPORT INFORMATION
  Report Type: 
  Country: None (occurrence: None)
  Receive Date: 20040317
  Receipt Date: 20040303
  Transmission Date: 20041129
  Serious: Yes (Hospitalization, Other)
  Sender: FDA-Public Use
  Company Number: 2004014817

PATIENT
  Age: 65 Year
  Sex: Female

DRUGS (1)
  1. FELDENE [Suspect]
     Indication: SPINAL COLUMN STENOSIS
     Dosage: 100 MG, ORAL
     Route: 048

REACTIONS (3)
  - ABDOMINAL PAIN [None]
  - GASTRIC HAEMORRHAGE [None]
  - GASTROOESOPHAGEAL REFLUX DISEASE [None]
